FAERS Safety Report 4546143-3 (Version None)
Quarter: 2005Q1

REPORT INFORMATION
  Report Type: 
  Country: None (occurrence: None)
  Receive Date: 20050103
  Receipt Date: 20041220
  Transmission Date: 20050727
  Serious: Yes (Other)
  Sender: FDA-Public Use
  Company Number: 2004116826

PATIENT
  Age: 72 Year
  Sex: Female
  Weight: 83.9154 kg

DRUGS (11)
  1. CELEBREX [Suspect]
     Indication: OSTEOARTHRITIS
     Dosage: 400 MG (200 MG, 2 IN 1 D), ORAL
     Route: 048
     Dates: end: 20040101
  2. GABAPENTIN [Concomitant]
  3. SULFASALAZINE [Concomitant]
  4. PENTOXIFYLLINE [Concomitant]
  5. METFORMIN HCL [Concomitant]
  6. GLIPIZIDE [Concomitant]
  7. PIOGLITAZONE HCL [Concomitant]
  8. FOLIC ACID [Concomitant]
  9. ROSUVASTATIN (ROSUVASTATIN) [Concomitant]
  10. CILOSTAZOL [Concomitant]
  11. KARVEA HCT (HYDROCHLOROTHIAZIDE, IRBESARTAN) [Concomitant]

REACTIONS (3)
  - COLONIC POLYP [None]
  - PAIN [None]
  - STOMACH DISCOMFORT [None]
